APPROVED DRUG PRODUCT: TADALAFIL
Active Ingredient: TADALAFIL
Strength: 20MG
Dosage Form/Route: TABLET;ORAL
Application: A210716 | Product #004
Applicant: CHARTWELL RX SCIENCES LLC
Approved: Dec 29, 2020 | RLD: No | RS: No | Type: DISCN